FAERS Safety Report 6416009-2 (Version None)
Quarter: 2009Q4

REPORT INFORMATION
  Report Type: 
  Country: None (occurrence: None)
  Receive Date: 20091023
  Receipt Date: 20091012
  Transmission Date: 20100525
  Serious: No
  Sender: FDA-Public Use
  Company Number: 20097575

PATIENT
  Sex: Male

DRUGS (1)
  1. LIORESAL [Suspect]
     Indication: MUSCLE SPASTICITY
     Dosage: MCG, DAILY, INTRATHECAL
     Route: 037

REACTIONS (4)
  - IMPLANT SITE SWELLING [None]
  - INCISION SITE ERYTHEMA [None]
  - INCISION SITE PAIN [None]
  - INTRACRANIAL HYPOTENSION [None]
